FAERS Safety Report 9388860 (Version 1)
Quarter: 2013Q3

REPORT INFORMATION
  Report Type: Spontaneous
  Country: US (occurrence: US)
  Receive Date: 20130708
  Receipt Date: 20130708
  Transmission Date: 20140515
  Serious: Yes (Other)
  Sender: FDA-Public Use
  Company Number: US-PFIZER INC-2013198390

PATIENT
  Age: 76 Year
  Sex: Female
  Weight: 57.14 kg

DRUGS (2)
  1. LIPITOR [Suspect]
     Dosage: UNK
     Route: 048
     Dates: start: 2008, end: 2008
  2. SOTALOL [Concomitant]
     Indication: ATRIAL FIBRILLATION
     Dosage: UNK
     Route: 048
     Dates: start: 1991

REACTIONS (2)
  - Cardiac disorder [Unknown]
  - Influenza like illness [Recovered/Resolved]
